FAERS Safety Report 4277500-0 (Version None)
Quarter: 2004Q1

REPORT INFORMATION
  Report Type: 
  Country: None (occurrence: None)
  Receive Date: 20040122
  Receipt Date: 19990430
  Transmission Date: 20041129
  Serious: Yes (Hospitalization)
  Sender: FDA-Public Use
  Company Number: 99F--10373

PATIENT
  Age: 65 Year
  Sex: Male
  Weight: 48 kg

DRUGS (10)
  1. HEMODIALYSIS [Concomitant]
     Dosage: 3 COURSES/WEEK
  2. LIORESAL [Suspect]
     Indication: HICCUPS
     Dosage: 5 MG, QD
     Route: 048
     Dates: start: 19990318, end: 19990323
  3. RIMIFON [Concomitant]
     Indication: PULMONARY TUBERCULOSIS
     Route: 048
     Dates: start: 19990302
  4. RIFAMPICIN [Concomitant]
     Indication: PULMONARY TUBERCULOSIS
     Dosage: 900 MG/DAY
     Route: 048
     Dates: start: 19990302
  5. INH [Concomitant]
     Indication: PULMONARY TUBERCULOSIS
     Route: 048
  6. TRIATEC [Concomitant]
     Route: 048
  7. AMLOR [Concomitant]
     Route: 048
  8. PIRILENE [Concomitant]
     Indication: PULMONARY TUBERCULOSIS
     Dosage: 750 MG/DAY
     Route: 048
     Dates: start: 19990302
  9. MOPRAL [Concomitant]
     Dosage: 40 MG/DAY
     Route: 048
  10. FOSINOPRIL SODIUM [Concomitant]
     Dosage: 0.5 TAB/DAY
     Route: 048

REACTIONS (12)
  - AGITATION [None]
  - BLOOD BICARBONATE INCREASED [None]
  - BLOOD CREATININE ABNORMAL [None]
  - BLOOD GLUCOSE INCREASED [None]
  - BLOOD UREA INCREASED [None]
  - COMA [None]
  - CONFUSIONAL STATE [None]
  - ENCEPHALOPATHY [None]
  - HAEMOGLOBIN DECREASED [None]
  - MUSCLE RIGIDITY [None]
  - PERSONALITY CHANGE DUE TO A GENERAL MEDICAL CONDITION [None]
  - TOXIC INDUCED ENCEPHALOPATHY [None]
